FAERS Safety Report 5616125-9 (Version None)
Quarter: 2008Q1

REPORT INFORMATION
  Report Type: 
  Country: None (occurrence: None)
  Receive Date: 20080201
  Receipt Date: 20080117
  Transmission Date: 20080703
  Serious: Yes (Death)
  Sender: FDA-Public Use
  Company Number: SPV1-2007-05113

PATIENT
  Age: 17 Year
  Sex: Female
  Weight: 75.3 kg

DRUGS (1)
  1. PENTASA [Suspect]
     Indication: CROHN'S DISEASE
     Dosage: 14 UNK, ONE DOSE, ORAL
     Route: 048

REACTIONS (2)
  - COMPLETED SUICIDE [None]
  - SELF-MEDICATION [None]
